FAERS Safety Report 8531216-0 (Version None)
Quarter: 2012Q3

REPORT INFORMATION
  Report Type: 
  Country: None (occurrence: None)
  Receive Date: 20120723
  Receipt Date: 20120713
  Transmission Date: 20120928
  Serious: Yes (Hospitalization, Other)
  Sender: FDA-Public Use
  Company Number: US-ASTRAZENECA-2012SE29536

PATIENT
  Age: 43 Year
  Sex: Male
  Weight: 108.9 kg

DRUGS (65)
  1. SEROQUEL [Suspect]
     Indication: NERVOUS SYSTEM DISORDER
     Route: 048
     Dates: start: 20110201
  2. SEROQUEL [Suspect]
     Indication: DEPRESSION
     Route: 048
     Dates: start: 20110201
  3. SEROQUEL [Suspect]
     Route: 048
     Dates: start: 20120501
  4. SEROQUEL [Suspect]
     Route: 048
     Dates: start: 20070118
  5. SEROQUEL [Suspect]
     Route: 048
  6. SEROQUEL [Suspect]
     Dosage: 25 MG 1 TO 2, AT BED TIME
     Route: 048
  7. SEROQUEL [Suspect]
     Route: 048
  8. WELLBUTRIN [Concomitant]
     Indication: DEPRESSION
     Route: 048
     Dates: start: 20070118
  9. SEROQUEL [Suspect]
     Route: 048
     Dates: start: 20070118
  10. SEROQUEL [Suspect]
     Route: 048
  11. SEROQUEL [Suspect]
     Dosage: 50 MG IN THE MORNING, 50 MG AT LUNCH AND 200 MG AT NIGHT
     Route: 048
  12. SEROQUEL [Suspect]
     Route: 048
  13. SEROQUEL [Suspect]
     Route: 048
  14. TYLENOL [Concomitant]
     Route: 048
  15. ALLOPURINOL [Concomitant]
  16. SEROQUEL [Suspect]
     Route: 048
     Dates: start: 20120501
  17. SEROQUEL [Suspect]
     Route: 048
     Dates: start: 20120501
  18. SEROQUEL [Suspect]
     Route: 048
     Dates: start: 20120501
  19. SEROQUEL [Suspect]
     Dosage: 25 MG 1 TO 2, AT BED TIME
     Route: 048
  20. SEROQUEL [Suspect]
     Dosage: 50 MG IN THE MORNING, 50 MG AT LUNCH AND 200 MG AT NIGHT
     Route: 048
  21. SEROQUEL [Suspect]
     Route: 048
  22. TIZANIDINE HYDROCHLORIDE [Concomitant]
  23. LAMICTAL [Concomitant]
  24. ALLOPURINOL [Concomitant]
     Route: 048
  25. CYCLOBENAZPRINE [Concomitant]
  26. SEROQUEL [Suspect]
     Indication: BIPOLAR DISORDER
     Route: 048
     Dates: start: 20110201
  27. SEROQUEL [Suspect]
     Route: 048
     Dates: start: 20070118
  28. NEXIUM [Concomitant]
     Route: 042
  29. ASPIRIN [Concomitant]
  30. ACYCLOVIR [Concomitant]
     Route: 048
  31. SEROQUEL [Suspect]
     Route: 048
     Dates: start: 20120501
  32. SEROQUEL [Suspect]
     Route: 048
  33. SEROQUEL [Suspect]
     Dosage: 25 MG 1 TO 2, AT BED TIME
     Route: 048
  34. SEROQUEL [Suspect]
     Route: 048
  35. FIORICET [Concomitant]
     Indication: PAIN
     Dosage: Q 4 HOURS, PRN
     Route: 048
  36. ZOFRAN [Concomitant]
     Indication: NAUSEA
     Dosage: 4.6MG Q8 HOURS, PRN
     Route: 042
  37. LAMICTAL [Concomitant]
     Route: 048
  38. PREDNISONE [Concomitant]
  39. CALCIUM [Concomitant]
     Route: 048
  40. VITAMIN B COMPLEX CAP [Concomitant]
     Route: 048
  41. FISH OIL [Concomitant]
     Route: 048
  42. SEROQUEL [Suspect]
     Route: 048
     Dates: start: 20120501
  43. SEROQUEL [Suspect]
     Route: 048
     Dates: start: 20070118
  44. SEROQUEL [Suspect]
     Route: 048
  45. SEROQUEL [Suspect]
     Dosage: 50 MG IN THE MORNING, 50 MG AT LUNCH AND 200 MG AT NIGHT
     Route: 048
  46. SEROQUEL [Suspect]
     Dosage: 50 MG IN THE MORNING, 50 MG AT LUNCH AND 200 MG AT NIGHT
     Route: 048
  47. LORAZEPAM [Concomitant]
  48. SEROQUEL [Suspect]
     Dosage: 25 MG 1 TO 2, AT BED TIME
     Route: 048
  49. SEROQUEL [Suspect]
     Route: 048
  50. SEROQUEL [Suspect]
     Route: 048
  51. AMBIEN [Concomitant]
  52. WELLBUTRIN [Concomitant]
     Route: 048
  53. LORAZEPAM [Concomitant]
  54. OMEPRAZOLE [Concomitant]
  55. OMEPRAZOLE [Concomitant]
  56. PROPRANOLOL [Concomitant]
     Route: 048
  57. VITAMIN D [Concomitant]
     Route: 048
  58. MULTI-VITAMINS [Concomitant]
     Route: 048
  59. SEROQUEL [Suspect]
     Indication: MOOD SWINGS
     Route: 048
     Dates: start: 20110201
  60. SEROQUEL [Suspect]
     Route: 048
     Dates: start: 20120501
  61. SEROQUEL [Suspect]
     Route: 048
     Dates: start: 20120501
  62. SEROQUEL [Suspect]
     Route: 048
  63. TYLENOL [Concomitant]
     Route: 048
  64. LOVASTATIN [Concomitant]
  65. MAGNESIUM SULFATE [Concomitant]
     Route: 048

REACTIONS (24)
  - SKULL FRACTURED BASE [None]
  - ALCOHOL POISONING [None]
  - BRAIN CONTUSION [None]
  - SKULL FRACTURE [None]
  - HERPES ZOSTER OPHTHALMIC [None]
  - DRUG DOSE OMISSION [None]
  - THERAPEUTIC RESPONSE UNEXPECTED [None]
  - SINUSITIS [None]
  - FALL [None]
  - HEADACHE [None]
  - ALCOHOL WITHDRAWAL SYNDROME [None]
  - INSOMNIA [None]
  - BRAIN INJURY [None]
  - SUBARACHNOID HAEMORRHAGE [None]
  - BRAIN COMPRESSION [None]
  - HEAD INJURY [None]
  - ADVERSE EVENT [None]
  - SLEEP APNOEA SYNDROME [None]
  - EYE PAIN [None]
  - SUBDURAL HAEMATOMA [None]
  - COGNITIVE DISORDER [None]
  - BRAIN MIDLINE SHIFT [None]
  - AGITATION [None]
  - OFF LABEL USE [None]
